FAERS Safety Report 8217917-2 (Version None)
Quarter: 2012Q1

REPORT INFORMATION
  Report Type: 
  Country: None (occurrence: None)
  Receive Date: 20120319
  Receipt Date: 20120305
  Transmission Date: 20120608
  Serious: Yes (Hospitalization, Disabling)
  Sender: FDA-Public Use
  Company Number: NO-ELI_LILLY_AND_COMPANY-NO201203002745

PATIENT
  Sex: Male

DRUGS (5)
  1. FLUOXETINE HCL [Suspect]
     Indication: PANIC DISORDER
     Dosage: 20 MG, QD
     Dates: start: 20100201, end: 20100601
  2. ALPRAZOLAM [Concomitant]
     Dosage: 25 MG, BID
     Dates: start: 20100301, end: 20100101
  3. VALIUM [Concomitant]
     Indication: PANIC DISORDER
     Dosage: UNK
     Dates: start: 20100201, end: 20100101
  4. INDERAL [Concomitant]
     Dosage: 40 MG, BID
     Dates: start: 20100401
  5. ALPRAZOLAM [Concomitant]
     Indication: ANXIETY
     Dosage: 0.5 MG, QID
     Dates: start: 20100201, end: 20100201

REACTIONS (13)
  - PHOTOPHOBIA [None]
  - SOMNOLENCE [None]
  - FATIGUE [None]
  - ANXIETY [None]
  - ABDOMINAL PAIN [None]
  - CONSTIPATION [None]
  - INSOMNIA [None]
  - DYSPNOEA [None]
  - HEADACHE [None]
  - MUSCLE SPASMS [None]
  - FUNGAL INFECTION [None]
  - HANGOVER [None]
  - ASTHENIA [None]
